FAERS Safety Report 23318014 (Version 4)
Quarter: 2024Q1

REPORT INFORMATION
  Report Type: Report from Study
  Country: US (occurrence: US)
  Receive Date: 20231219
  Receipt Date: 20240125
  Transmission Date: 20240409
  Serious: Yes (Hospitalization)
  Sender: FDA-Public Use
  Company Number: US-ABBVIE-5547650

PATIENT
  Age: 48 Year
  Sex: Female
  Weight: 123 kg

DRUGS (1)
  1. UBRELVY [Suspect]
     Active Substance: UBROGEPANT
     Indication: Migraine
     Dosage: FORM STRENGTH: 100 MG?DURATION TEXT: TWO YEARS
     Route: 048
     Dates: start: 2021, end: 202311

REACTIONS (7)
  - Idiopathic intracranial hypertension [Recovered/Resolved]
  - Diplopia [Recovered/Resolved]
  - Crohn^s disease [Unknown]
  - Migraine [Recovered/Resolved]
  - Migraine [Not Recovered/Not Resolved]
  - Vision blurred [Not Recovered/Not Resolved]
  - Drug ineffective [Unknown]

NARRATIVE: CASE EVENT DATE: 20231101
